FAERS Safety Report 7403313 (Version 3)
Quarter: 2013Q1

REPORT INFORMATION
  Report Type: Spontaneous
  Country: US (occurrence: US)
  Receive Date: 20100528
  Receipt Date: 20130220
  Transmission Date: 20140127
  Serious: No
  Sender: FDA-Public Use
  Company Number: US-ASTRAZENECA-2010SE10668

PATIENT
  Sex: Female
  Weight: 53.5 kg

DRUGS (9)
  1. NEXIUM [Suspect]
     Route: 048
  2. PRILOSEC [Suspect]
     Route: 048
  3. PRILOSEC [Suspect]
     Dosage: GENERIC PRILOSEC
  4. TOPROL XL [Suspect]
     Indication: HYPERTENSION
     Route: 048
  5. METOPROLOL SUCCINATE [Suspect]
     Indication: HYPERTENSION
  6. METOPROLOL SUCCINATE [Suspect]
     Indication: HYPERTENSION
  7. LORAZEPAM [Concomitant]
  8. ACIPHEX [Concomitant]
  9. ZANTAC [Concomitant]

REACTIONS (11)
  - Oesophageal pain [Unknown]
  - Chest pain [Unknown]
  - Herpes zoster [Unknown]
  - Gastrooesophageal reflux disease [Unknown]
  - Palpitations [Unknown]
  - Paraesthesia [Unknown]
  - Headache [Unknown]
  - Blood pressure increased [Unknown]
  - Panic attack [Unknown]
  - Drug ineffective [Unknown]
  - Drug dose omission [Unknown]
